FAERS Safety Report 6899087-6 (Version None)
Quarter: 2010Q3

REPORT INFORMATION
  Report Type: 
  Country: None (occurrence: None)
  Receive Date: 20100802
  Receipt Date: 20080102
  Transmission Date: 20110219
  Serious: No
  Sender: FDA-Public Use
  Company Number: US-PFIZER INC-2008001105

PATIENT
  Sex: Male

DRUGS (7)
  1. LYRICA [Suspect]
     Indication: COMPLEX PARTIAL SEIZURES
  2. PROTRIPTYLINE [Concomitant]
  3. ALL OTHER THERAPEUTIC PRODUCTS [Concomitant]
  4. CLONAZEPAM [Concomitant]
  5. TRIMIPRAMINE MALEATE [Concomitant]
  6. METFORMIN HCL [Concomitant]
  7. NICOTINE [Concomitant]

REACTIONS (2)
  - BLOOD CREATINE PHOSPHOKINASE INCREASED [None]
  - RHABDOMYOMA [None]
